FAERS Safety Report 8093185-X (Version None)
Quarter: 2012Q1

REPORT INFORMATION
  Report Type: 
  Country: None (occurrence: None)
  Receive Date: 20120131
  Receipt Date: 20120119
  Transmission Date: 20120608
  Serious: Yes (Hospitalization)
  Sender: FDA-Public Use
  Company Number: US-ELI_LILLY_AND_COMPANY-US201201006572

PATIENT
  Sex: Female

DRUGS (2)
  1. HUMALOG [Suspect]
     Indication: DIABETES MELLITUS
     Dosage: SLIDING SCALE
     Route: 065
  2. HUMALOG [Suspect]
     Dosage: SLIDING SCALE
     Route: 065

REACTIONS (10)
  - EYE DISORDER [None]
  - KNEE OPERATION [None]
  - ROAD TRAFFIC ACCIDENT [None]
  - BREAST OPERATION [None]
  - INJURY ASSOCIATED WITH DEVICE [None]
  - JOINT INJURY [None]
  - ROTATOR CUFF SYNDROME [None]
  - GLAUCOMA [None]
  - MOBILITY DECREASED [None]
  - CATARACT [None]
